FAERS Safety Report 7418416-8 (Version None)
Quarter: 2011Q2

REPORT INFORMATION
  Report Type: 
  Country: None (occurrence: None)
  Receive Date: 20110415
  Receipt Date: 20110406
  Transmission Date: 20111010
  Serious: Yes (Hospitalization)
  Sender: FDA-Public Use
  Company Number: JP-BRISTOL-MYERS SQUIBB COMPANY-15674013

PATIENT
  Age: 7 Decade
  Sex: Male

DRUGS (3)
  1. STEROIDS [Concomitant]
  2. MINOMYCIN [Concomitant]
  3. ERBITUX [Suspect]
     Indication: COLORECTAL CANCER METASTATIC
     Route: 042

REACTIONS (1)
  - PROTEINURIA [None]
